FAERS Safety Report 7267176-2 (Version None)
Quarter: 2011Q1

REPORT INFORMATION
  Report Type: 
  Country: None (occurrence: None)
  Receive Date: 20110201
  Receipt Date: 20110125
  Transmission Date: 20110831
  Serious: Yes (Other)
  Sender: FDA-Public Use
  Company Number: US-RB-019504-11

PATIENT
  Sex: Female

DRUGS (4)
  1. ZITHROMAX [Concomitant]
     Dosage: CONSUMER TOOK 6 DOSES
  2. CRESTOR [Concomitant]
  3. FOSINOPRIL SODIUM [Concomitant]
  4. MUCINEX D [Suspect]
     Dosage: THE PATIENT TOOK ONE OR TWO TABLETS DAILY DEPENDING ON HOW SHE FELT; 12 DOSES IN TOTAL
     Route: 048

REACTIONS (2)
  - BLOOD PRESSURE INCREASED [None]
  - INCORRECT DRUG ADMINISTRATION DURATION [None]
